FAERS Safety Report 24292630 (Version 1)
Quarter: 2024Q3

REPORT INFORMATION
  Report Type: Spontaneous
  Country: CA (occurrence: CA)
  Receive Date: 20240906
  Receipt Date: 20240906
  Transmission Date: 20241016
  Serious: Yes (Death, Life-Threatening)
  Sender: B BRAUN
  Company Number: CA-B.Braun Medical Inc.-2161325

PATIENT
  Age: 84 Year
  Sex: Male
  Weight: 49 kg

DRUGS (10)
  1. HEPARIN SODIUM IN DEXTROSE [Suspect]
     Active Substance: HEPARIN SODIUM
     Indication: Pulmonary embolism
     Route: 042
  2. ELIQUIS [Suspect]
     Active Substance: APIXABAN
  3. Nystatin oral?suspension 100000unit/ml usp and sennosides [Concomitant]
  4. MORPHINE [Concomitant]
     Active Substance: MORPHINE
  5. DIPHENHYDRAMINE HYDROCHLORIDE\LIDOCAINE HYDROCHLORIDE\NYSTATIN [Concomitant]
     Active Substance: DIPHENHYDRAMINE HYDROCHLORIDE\LIDOCAINE HYDROCHLORIDE\NYSTATIN
  6. POLYETHYLENE GLYCOL 3350 [Concomitant]
     Active Substance: POLYETHYLENE GLYCOL 3350
  7. GLYCERIN SUPPOSITORIES [Concomitant]
  8. CEFTRIAXONE SODIUM [Concomitant]
     Active Substance: CEFTRIAXONE SODIUM
  9. AZITHROMYCIN [Concomitant]
     Active Substance: AZITHROMYCIN
  10. ACETAMINOPHEN [Concomitant]
     Active Substance: ACETAMINOPHEN

REACTIONS (6)
  - Anaemia [Fatal]
  - Thrombosis [Fatal]
  - Oesophageal injury [Fatal]
  - Haemorrhage [Fatal]
  - Haemoglobin decreased [Fatal]
  - Faeces discoloured [Fatal]
